FAERS Safety Report 6066916-8 (Version None)
Quarter: 2009Q1

REPORT INFORMATION
  Report Type: 
  Country: None (occurrence: None)
  Receive Date: 20090205
  Receipt Date: 20080930
  Transmission Date: 20090719
  Serious: No
  Sender: FDA-Public Use
  Company Number: US-ABBOTT-08P-163-0478988-00

PATIENT
  Sex: Female
  Weight: 72.64 kg

DRUGS (2)
  1. VICODIN [Suspect]
     Indication: PAIN
     Route: 048
  2. DROSPIRENONE W/ETHINYLESTRADIOL [Concomitant]
     Indication: CONTRACEPTION
     Dosage: 1 PILL
     Route: 048
     Dates: start: 19980101

REACTIONS (1)
  - PHARYNGEAL OEDEMA [None]
